FAERS Safety Report 5745362-8 (Version None)
Quarter: 2008Q2

REPORT INFORMATION
  Report Type: 
  Country: None (occurrence: None)
  Receive Date: 20080521
  Receipt Date: 20080516
  Transmission Date: 20081010
  Serious: Yes (Other)
  Sender: FDA-Public Use
  Company Number: US-MERCK-0804USA00058

PATIENT
  Age: 8 Year
  Sex: Male
  Weight: 31 kg

DRUGS (5)
  1. SINGULAIR [Suspect]
     Indication: RHINITIS ALLERGIC
     Route: 048
     Dates: start: 20070401, end: 20071101
  2. SINGULAIR [Suspect]
     Route: 048
     Dates: start: 20080306, end: 20080328
  3. SINGULAIR [Suspect]
     Indication: ASTHMA
     Route: 048
     Dates: start: 20070401, end: 20071101
  4. SINGULAIR [Suspect]
     Route: 048
     Dates: start: 20080306, end: 20080328
  5. FLOVENT [Concomitant]
     Route: 065

REACTIONS (9)
  - CRYING [None]
  - EMOTIONAL DISTRESS [None]
  - FRUSTRATION [None]
  - HEAD TITUBATION [None]
  - HEADACHE [None]
  - MIGRAINE [None]
  - MOOD ALTERED [None]
  - SLEEP DISORDER [None]
  - SUICIDAL IDEATION [None]
